FAERS Safety Report 8199235-4 (Version None)
Quarter: 2012Q1

REPORT INFORMATION
  Report Type: 
  Country: None (occurrence: None)
  Receive Date: 20120309
  Receipt Date: 20120227
  Transmission Date: 20120608
  Serious: No
  Sender: FDA-Public Use
  Company Number: US-ELI_LILLY_AND_COMPANY-US201110003128

PATIENT
  Sex: Male
  Weight: 87.075 kg

DRUGS (6)
  1. HUMULIN 70/30 [Suspect]
     Dosage: 25 U, EACH EVENING
     Dates: start: 20090101
  2. HUMULIN 70/30 [Suspect]
     Dosage: 20 U, EACH MORNING
     Dates: start: 20090101
  3. HUMULIN 70/30 [Suspect]
     Dosage: 25 U, EACH EVENING
     Dates: start: 20090101
  4. HUMULIN 70/30 [Suspect]
     Dosage: 20 U, EACH MORNING
     Dates: start: 20090101
  5. HUMULIN 70/30 [Suspect]
     Indication: DIABETES MELLITUS
     Dosage: 20 U, EACH MORNING
     Dates: start: 20090101
  6. HUMULIN 70/30 [Suspect]
     Dosage: 25 U, EACH EVENING
     Dates: start: 20090101

REACTIONS (5)
  - NEUROPATHY PERIPHERAL [None]
  - BLOOD GLUCOSE INCREASED [None]
  - DIZZINESS [None]
  - INCORRECT DOSE ADMINISTERED [None]
  - BLOOD GLUCOSE DECREASED [None]
